FAERS Safety Report 7504495-6 (Version None)
Quarter: 2011Q2

REPORT INFORMATION
  Report Type: 
  Country: None (occurrence: None)
  Receive Date: 20110525
  Receipt Date: 20110518
  Transmission Date: 20111010
  Serious: Yes (Other)
  Sender: FDA-Public Use
  Company Number: US-US-EMD SERONO, INC.-7055510

PATIENT
  Sex: Female
  Weight: 68 kg

DRUGS (4)
  1. ALENDRONATE SODIUM [Concomitant]
     Indication: OSTEOPOROSIS
  2. METOPROLOL TARTRATE [Concomitant]
     Indication: HYPERTENSION
  3. VESICARE [Concomitant]
     Indication: BLADDER DISORDER
  4. REBIF [Suspect]
     Indication: MULTIPLE SCLEROSIS
     Route: 058
     Dates: start: 20060918

REACTIONS (7)
  - PNEUMONIA [None]
  - INJECTION SITE HAEMORRHAGE [None]
  - UPPER RESPIRATORY TRACT INFECTION [None]
  - DRY SKIN [None]
  - INJECTION SITE HAEMATOMA [None]
  - WEIGHT INCREASED [None]
  - FEELING COLD [None]
